FAERS Safety Report 8081511-7 (Version None)
Quarter: 2012Q1

REPORT INFORMATION
  Report Type: 
  Country: None (occurrence: None)
  Receive Date: 20120130
  Receipt Date: 20120124
  Transmission Date: 20120608
  Serious: Yes (Other)
  Sender: FDA-Public Use
  Company Number: PHEH2012US002148

PATIENT
  Sex: Female

DRUGS (2)
  1. MACROBID [Concomitant]
     Indication: URINARY TRACT INFECTION
  2. VIVELLE-DOT [Suspect]
     Dosage: 0.05 UNK
     Dates: start: 20120109, end: 20120114

REACTIONS (6)
  - STRIDOR [None]
  - ANAPHYLACTIC SHOCK [None]
  - RASH GENERALISED [None]
  - APPLICATION SITE RASH [None]
  - URTICARIA [None]
  - DYSPNOEA [None]
